FAERS Safety Report 17610542 (Version 3)
Quarter: 2020Q3

REPORT INFORMATION
  Report Type: Report from Study
  Country: US (occurrence: US)
  Receive Date: 20200401
  Receipt Date: 20200703
  Transmission Date: 20201102
  Serious: No
  Sender: FDA-Public Use
  Company Number: NVSC2020US088469

PATIENT
  Sex: Female

DRUGS (2)
  1. COSENTYX [Suspect]
     Active Substance: SECUKINUMAB
     Indication: PSORIATIC ARTHROPATHY
     Dosage: 150 MG, QW (FOR 5 WEEKS THEN ONCE EVERY 4 WEEKS)
     Route: 058
     Dates: start: 20200123
  2. COSENTYX [Suspect]
     Active Substance: SECUKINUMAB
     Indication: PSORIASIS

REACTIONS (3)
  - Joint swelling [Unknown]
  - Arthralgia [Not Recovered/Not Resolved]
  - Psoriasis [Unknown]
